FAERS Safety Report 7777583-7 (Version None)
Quarter: 2011Q3

REPORT INFORMATION
  Report Type: 
  Country: None (occurrence: None)
  Receive Date: 20110926
  Receipt Date: 20110921
  Transmission Date: 20111222
  Serious: Yes (Death, Hospitalization)
  Sender: FDA-Public Use
  Company Number: US-ELI_LILLY_AND_COMPANY-US201002005919

PATIENT
  Sex: Female
  Weight: 73.016 kg

DRUGS (15)
  1. HYZAAR [Concomitant]
     Dosage: UNK, DAILY (1/D)
  2. VITAMIN E /001105/ [Concomitant]
     Dosage: UNK, DAILY (1/D)
  3. LEVOTHYROXINE SODIUM [Concomitant]
     Dosage: 175 UG, DAILY (1/D)
     Route: 048
  4. VICODIN [Concomitant]
     Dosage: UNK, AS NEEDED
  5. SPIRIVA [Concomitant]
     Dosage: UNK, DAILY (1/D)
  6. PREMARIN [Concomitant]
     Dosage: 0.625 MG, DAILY (1/D)
  7. ACTONEL [Concomitant]
     Dosage: 5 MG, OTHER
  8. OXYCONTIN [Concomitant]
  9. CETUXIMAB [Suspect]
     Indication: NON-SMALL CELL LUNG CANCER METASTATIC
     Dosage: 462 MG, OTHER
     Route: 042
     Dates: start: 20080915, end: 20081006
  10. POTASSIUM CHLORIDE [Concomitant]
     Dosage: UNK, DAILY (1/D)
  11. FOLIC ACID [Concomitant]
     Dosage: UNK, DAILY (1/D)
  12. VERAPAMIL [Concomitant]
     Dosage: 180 MG, DAILY (1/D)
     Route: 048
  13. PROAIR HFA [Concomitant]
     Dosage: UNK, DAILY (1/D)
  14. PEMETREXED [Suspect]
     Indication: NON-SMALL CELL LUNG CANCER METASTATIC
     Dosage: 910 MG, OTHER
     Route: 042
     Dates: start: 20080915, end: 20081006
  15. MULTI-VITAMIN [Concomitant]
     Dosage: UNK, DAILY (1/D)

REACTIONS (3)
  - NEOPLASM MALIGNANT [None]
  - EPISTAXIS [None]
  - BACK PAIN [None]
